FAERS Safety Report 9119523 (Version 2)
Quarter: 2013Q4

REPORT INFORMATION
  Report Type: Spontaneous
  Country: US (occurrence: US)
  Receive Date: 20130226
  Receipt Date: 20131107
  Transmission Date: 20140711
  Serious: Yes (Other)
  Sender: FDA-Public Use
  Company Number: US-BAYER-2013-021384

PATIENT
  Age: 26 Year
  Sex: Female
  Weight: 61.22 kg

DRUGS (2)
  1. MIRENA [Suspect]
     Indication: CONTRACEPTION
     Dosage: 20 MCG/24HR, CONT
     Route: 015
     Dates: start: 20080827, end: 20111101
  2. LORTAB [Concomitant]

REACTIONS (13)
  - Uterine perforation [None]
  - Injury [None]
  - Pain [None]
  - Emotional distress [None]
  - Pregnancy with contraceptive device [None]
  - Drug ineffective [None]
  - Psychological trauma [None]
  - Depression [None]
  - Anxiety [None]
  - Sexual dysfunction [None]
  - Sleep disorder [None]
  - Device use error [None]
  - Device failure [None]
